FAERS Safety Report 9202152 (Version 2)
Quarter: 2013Q2

REPORT INFORMATION
  Report Type: Spontaneous
  Country: US (occurrence: US)
  Receive Date: 20130401
  Receipt Date: 20130418
  Transmission Date: 20140414
  Serious: Yes (Other)
  Sender: FDA-Public Use
  Company Number: US-GILEAD-2013-0072337

PATIENT
  Sex: Male

DRUGS (1)
  1. LETAIRIS [Suspect]
     Indication: PULMONARY ARTERIAL HYPERTENSION
     Dosage: 10 MG, UNK
     Dates: start: 20130312, end: 20130318

REACTIONS (11)
  - Hallucination, visual [Unknown]
  - Dysuria [Unknown]
  - Disturbance in attention [Unknown]
  - Abdominal distension [Unknown]
  - Insomnia [Unknown]
  - Dyspnoea [Unknown]
  - Nasal congestion [Unknown]
  - Local swelling [Recovering/Resolving]
  - Oedema [Unknown]
  - Asthenia [Unknown]
  - Fatigue [Unknown]
